FAERS Safety Report 10085359 (Version 1)
Quarter: 2014Q2

REPORT INFORMATION
  Report Type: Spontaneous
  Country: CA (occurrence: CA)
  Receive Date: 20140417
  Receipt Date: 20140417
  Transmission Date: 20141212
  Serious: Yes (Hospitalization, Other)
  Sender: FDA-Public Use
  Company Number: CA-009507513-1404CAN010021

PATIENT
  Age: 76 Year
  Sex: Female

DRUGS (5)
  1. EZETROL [Suspect]
     Indication: BLOOD CHOLESTEROL
     Dosage: DAILY DOSE OF 10 MG
     Route: 048
     Dates: start: 20121113, end: 20140214
  2. HYDROCHLOROTHIAZIDE [Concomitant]
     Dosage: 12.5 MG DAILY
  3. DILTIAZEM HYDROCHLORIDE [Concomitant]
     Dosage: 300 MG, QD
  4. ATORVASTATIN [Concomitant]
     Dosage: 20 MG, UNK
  5. ASPIRIN [Concomitant]
     Dosage: 80 MG, UNK

REACTIONS (2)
  - Heart valve replacement [Recovered/Resolved]
  - Cardiac valve disease [Recovered/Resolved]
